FAERS Safety Report 23618581 (Version 1)
Quarter: 2024Q1

REPORT INFORMATION
  Report Type: Spontaneous
  Country: US (occurrence: US)
  Receive Date: 20240311
  Receipt Date: 20240311
  Transmission Date: 20240409
  Serious: No
  Sender: FDA-Public Use
  Company Number: US-TRAVERE-2024TVT00230

PATIENT
  Age: 1 Month
  Sex: Female

DRUGS (2)
  1. CHOLBAM [Suspect]
     Active Substance: CHOLIC ACID
     Indication: Smith-Lemli-Opitz syndrome
     Dosage: 1/2 OF A 50 MG CAPSULE TWICE DAILY
     Route: 048
     Dates: start: 20240207
  2. CHOLBAM [Suspect]
     Active Substance: CHOLIC ACID
     Dosage: 1/2 A CAPSULE DAILY
     Route: 048

REACTIONS (1)
  - Diarrhoea [Unknown]

NARRATIVE: CASE EVENT DATE: 20240214
